FAERS Safety Report 9432322 (Version 1)
Quarter: 2013Q3

REPORT INFORMATION
  Report Type: Other
  Country: TR (occurrence: TR)
  Receive Date: 20130731
  Receipt Date: 20130731
  Transmission Date: 20140515
  Serious: Yes (Hospitalization)
  Sender: FDA-Public Use
  Company Number: TR-US-EMD SERONO, INC.-7226212

PATIENT
  Age: 27 Year
  Sex: Female

DRUGS (5)
  1. FOLLITROPIN ALFA [Suspect]
     Indication: OVULATION INDUCTION
  2. FOLLITROPIN ALFA [Suspect]
     Indication: IN VITRO FERTILISATION
  3. CETRORELIX ACETATE [Suspect]
     Indication: IN VITRO FERTILISATION
  4. CETRORELIX ACETATE [Suspect]
     Indication: OVULATION INDUCTION
  5. CHORIOGONADOTROPIN ALFA [Suspect]
     Indication: OVULATION INDUCTION

REACTIONS (2)
  - Nephrotic syndrome [Not Recovered/Not Resolved]
  - Ovarian hyperstimulation syndrome [Unknown]
